FAERS Safety Report 8920672 (Version 1)
Quarter: 2012Q4

REPORT INFORMATION
  Report Type: 
  Country: US (occurrence: US)
  Receive Date: 20121121
  Receipt Date: 20121121
  Transmission Date: 20130627
  Serious: Yes (Other)
  Sender: FDA-Public Use
  Company Number: US-BAYER-2012-120053

PATIENT
  Age: 65 Year
  Sex: Female

DRUGS (1)
  1. BAYER ADVANCED ASPIRIN EXTRA STRENGTH [Suspect]
     Indication: HEADACHE
     Dosage: 1
     Route: 048
     Dates: start: 201204

REACTIONS (1)
  - Chemical burn of gastrointestinal tract [Recovered/Resolved]
